FAERS Safety Report 12930115 (Version 1)
Quarter: 2016Q4

REPORT INFORMATION
  Report Type: Spontaneous
  Country: US (occurrence: US)
  Receive Date: 20161110
  Receipt Date: 20161110
  Transmission Date: 20170207
  Serious: Yes (Hospitalization, Disabling, Other)
  Sender: FDA-Public Use
  Company Number: None

PATIENT
  Age: 14 Year
  Sex: Female
  Weight: 59.4 kg

DRUGS (6)
  1. FYCOMPA [Suspect]
     Active Substance: PERAMPANEL
     Indication: SIMPLE PARTIAL SEIZURES
     Dosage: QUANTITY:4 TABLET(S); DAILY; ORAL ?
     Route: 048
     Dates: start: 20160805, end: 20160922
  2. ONFI [Concomitant]
     Active Substance: CLOBAZAM
  3. LAMICTAL XR [Concomitant]
     Active Substance: LAMOTRIGINE
  4. KEPPRA XR [Concomitant]
     Active Substance: LEVETIRACETAM
  5. DHA [Concomitant]
     Active Substance: DIETARY SUPPLEMENT
  6. B6 VITAMINS [Concomitant]

REACTIONS (1)
  - Tremor [None]

NARRATIVE: CASE EVENT DATE: 20160909
